FAERS Safety Report 22635010 (Version 1)
Quarter: 2023Q2

REPORT INFORMATION
  Report Type: Spontaneous
  Country: US (occurrence: None)
  Receive Date: 20230622
  Receipt Date: 20230622
  Transmission Date: 20230722
  Serious: No
  Sender: FDA-Public Use
  Company Number: None

PATIENT
  Age: 70 Year
  Sex: Male
  Weight: 77.4 kg

DRUGS (1)
  1. MITOMYCIN [Suspect]
     Active Substance: MITOMYCIN
     Indication: Bladder cancer
     Dosage: OTHER FREQUENCY : ONE A WK X 6 WEEKS;?OTHER ROUTE : URINARY BLADDER;?
     Route: 050

REACTIONS (1)
  - Urinary tract infection [None]
